FAERS Safety Report 11433952 (Version 2)
Quarter: 2015Q3

REPORT INFORMATION
  Report Type: Report from Study
  Country: US (occurrence: US)
  Receive Date: 20150831
  Receipt Date: 20150902
  Transmission Date: 20151125
  Serious: Yes (Death, Hospitalization)
  Sender: FDA-Public Use
  Company Number: US-ROCHE-1627380

PATIENT
  Age: 47 Year
  Sex: Male
  Weight: 90.35 kg

DRUGS (8)
  1. RITUXAN [Suspect]
     Active Substance: RITUXIMAB
     Indication: IMMUNE THROMBOCYTOPENIC PURPURA
     Dosage: WKLY X 5
     Route: 042
     Dates: start: 20150608, end: 20150707
  2. CYCLOSPORINE. [Concomitant]
     Active Substance: CYCLOSPORINE
     Route: 048
     Dates: start: 20150721
  3. ACETAMINOPHEN. [Concomitant]
     Active Substance: ACETAMINOPHEN
     Route: 048
  4. PREDNISONE. [Concomitant]
     Active Substance: PREDNISONE
     Indication: IMMUNE THROMBOCYTOPENIC PURPURA
     Route: 048
     Dates: start: 20150601
  5. PREDNISONE. [Concomitant]
     Active Substance: PREDNISONE
     Route: 065
     Dates: start: 20150629
  6. ADVIL [Concomitant]
     Active Substance: IBUPROFEN
  7. BENADRYL [Concomitant]
     Active Substance: DIPHENHYDRAMINE HYDROCHLORIDE
  8. SIMVASTATIN. [Concomitant]
     Active Substance: SIMVASTATIN
     Route: 065
     Dates: start: 20150629

REACTIONS (5)
  - Respiratory failure [Fatal]
  - Acute lung injury [Not Recovered/Not Resolved]
  - Dyspnoea [Fatal]
  - Pyrexia [Fatal]
  - Diffuse alveolar damage [Not Recovered/Not Resolved]

NARRATIVE: CASE EVENT DATE: 20150810
